FAERS Safety Report 8089035-8 (Version None)
Quarter: 2012Q1

REPORT INFORMATION
  Report Type: 
  Country: None (occurrence: None)
  Receive Date: 20120128
  Receipt Date: 20110708
  Transmission Date: 20120608
  Serious: No
  Sender: FDA-Public Use
  Company Number: US-ABBOTT-11P-163-0837330-00

PATIENT
  Sex: Female

DRUGS (3)
  1. PREDNISONE TAB [Concomitant]
     Indication: PRODUCT USED FOR UNKNOWN INDICATION
     Dosage: 15 MG DAILY
  2. HUMIRA [Suspect]
     Indication: CROHN'S DISEASE
     Dosage: INITIAL LOADING DOSE - 160 MG; 1 DOSE
     Dates: start: 20110707, end: 20110707
  3. MERCAPTOPURINE [Concomitant]
     Indication: PRODUCT USED FOR UNKNOWN INDICATION
     Route: 048

REACTIONS (1)
  - INJECTION SITE PAIN [None]
